FAERS Safety Report 9682843 (Version 1)
Quarter: 2013Q4

REPORT INFORMATION
  Report Type: Spontaneous
  Country: US (occurrence: None)
  Receive Date: 20131111
  Receipt Date: 20131111
  Transmission Date: 20140711
  Serious: Yes (Other)
  Sender: FDA-Public Use
  Company Number: None

PATIENT
  Age: 81 Year
  Sex: Female
  Weight: 65.77 kg

DRUGS (1)
  1. SIMBRINZA [Suspect]
     Indication: GLAUCOMA
     Dosage: 1 DROP BID
     Route: 047
     Dates: start: 20131104, end: 20131105

REACTIONS (1)
  - Hallucination [None]
